FAERS Safety Report 9134896 (Version 1)
Quarter: 2013Q1

REPORT INFORMATION
  Report Type: Spontaneous
  Country: US (occurrence: US)
  Receive Date: 20130304
  Receipt Date: 20130304
  Transmission Date: 20140127
  Serious: Yes (Other)
  Sender: FDA-Public Use
  Company Number: US-PFIZER INC-2013075113

PATIENT
  Sex: Female
  Weight: 78.01 kg

DRUGS (3)
  1. LYRICA [Suspect]
     Indication: FIBROMYALGIA
     Dosage: 100 MG, 2X/DAY
     Dates: start: 2010, end: 201302
  2. LYRICA [Suspect]
     Indication: DIABETIC NEUROPATHY
  3. DIOVAN (VALSARTAN) [Concomitant]
     Indication: HYPERTENSION
     Dosage: UNK

REACTIONS (3)
  - Cataract [Unknown]
  - Vision blurred [Recovered/Resolved]
  - Somnolence [Recovered/Resolved]
